FAERS Safety Report 17054596 (Version 2)
Quarter: 2019Q4

REPORT INFORMATION
  Report Type: Spontaneous
  Country: US (occurrence: US)
  Receive Date: 20191120
  Receipt Date: 20191205
  Transmission Date: 20200122
  Serious: Yes (Other)
  Sender: FDA-Public Use
  Company Number: US-ASTRAZENECA-2019SF52359

PATIENT
  Age: 77 Year
  Sex: Female

DRUGS (1)
  1. SYMBICORT [Suspect]
     Active Substance: BUDESONIDE\FORMOTEROL FUMARATE DIHYDRATE
     Indication: CHRONIC OBSTRUCTIVE PULMONARY DISEASE
     Dosage: 160/4.5 MCG,TWO SQUIRTS AT 7:00 AM AND TWO MORE PUFFS IN AT 7:00 PM.
     Route: 055

REACTIONS (7)
  - Hypersensitivity [Unknown]
  - Incorrect dose administered [Not Recovered/Not Resolved]
  - Dyspnoea [Unknown]
  - Sneezing [Unknown]
  - Pulmonary oedema [Unknown]
  - Asthma [Unknown]
  - Drug delivery system issue [Unknown]

NARRATIVE: CASE EVENT DATE: 2019
